FAERS Safety Report 20862799 (Version 1)
Quarter: 2022Q2

REPORT INFORMATION
  Report Type: Spontaneous
  Country: US (occurrence: US)
  Receive Date: 20220523
  Receipt Date: 20220523
  Transmission Date: 20220721
  Serious: Yes (Hospitalization)
  Sender: FDA-Public Use
  Company Number: US-PFIZER INC-202200707724

PATIENT
  Age: 51 Year
  Sex: Female

DRUGS (1)
  1. IBRANCE [Suspect]
     Active Substance: PALBOCICLIB
     Dosage: 125 MG, CYCLIC (TAKE 1 TABLET (125 MG) DAILY FOR 21 DAYS ON, FOLLOWED BY 7 DAYS OFF)
     Dates: start: 20220428, end: 20220507

REACTIONS (3)
  - Bladder injury [Unknown]
  - Hysterectomy [Unknown]
  - Dry mouth [Unknown]
